FAERS Safety Report 6646180-9 (Version None)
Quarter: 2010Q1

REPORT INFORMATION
  Report Type: 
  Country: None (occurrence: None)
  Receive Date: 20100323
  Receipt Date: 20100311
  Transmission Date: 20100710
  Serious: Yes (Death)
  Sender: FDA-Public Use
  Company Number: ES-PFIZER INC-2009163189

PATIENT
  Age: 75 Year
  Sex: Male
  Weight: 69 kg

DRUGS (6)
  1. SUNITINIB MALATE [Suspect]
     Indication: RENAL CANCER
     Dosage: 37.5 MG, 1X/DAY
     Dates: start: 20090112, end: 20090123
  2. GEMCITABINE HCL [Suspect]
     Indication: RENAL CANCER
     Dosage: 1829 MG, 1X/DAY
     Dates: start: 20090112, end: 20090123
  3. CAPECITABINE [Suspect]
     Indication: RENAL CANCER
     Dosage: 850 MG/M2, 2X/DAY
     Dates: start: 20090112, end: 20090123
  4. RAMIPRIL [Concomitant]
     Dosage: UNK
     Dates: start: 20050101
  5. ATENOLOL [Concomitant]
     Dosage: UNK
     Dates: start: 20050101
  6. ALLOPURINOL [Concomitant]
     Dosage: UNK
     Dates: start: 20050101

REACTIONS (1)
  - HYPOVOLAEMIC SHOCK [None]
